FAERS Safety Report 23827157 (Version 1)
Quarter: 2024Q2

REPORT INFORMATION
  Report Type: Spontaneous
  Country: US (occurrence: US)
  Receive Date: 20240507
  Receipt Date: 20240507
  Transmission Date: 20240716
  Serious: No
  Sender: FDA-Public Use
  Company Number: US-GLENMARK PHARMACEUTICALS-2024GMK089076

PATIENT

DRUGS (1)
  1. RYALTRIS [Suspect]
     Active Substance: MOMETASONE FUROATE MONOHYDRATE\OLOPATADINE HYDROCHLORIDE
     Indication: Hypersensitivity
     Dosage: 2 DOSAGE FORM, BID (2 SPRAYS IN EACH NOSTRIL, IN THE MORNING AND AT NIGHT)
     Route: 045
     Dates: start: 2023

REACTIONS (11)
  - Product use in unapproved indication [Unknown]
  - Product use issue [Unknown]
  - Wrong technique in device usage process [Unknown]
  - Ear infection [Unknown]
  - Paranasal sinus hypersecretion [Unknown]
  - Tinnitus [Unknown]
  - Head discomfort [Unknown]
  - Rhinorrhoea [Unknown]
  - Ear pain [Unknown]
  - Dizziness [Unknown]
  - Device delivery system issue [Unknown]
